FAERS Safety Report 8283254 (Version 3)
Quarter: 2016Q3

REPORT INFORMATION
  Report Type: Report from Study
  Country: AU (occurrence: AU)
  Receive Date: 20111211
  Receipt Date: 20160808
  Transmission Date: 20161109
  Serious: Yes (Death, Hospitalization, Other)
  Sender: FDA-Public Use
  Company Number: PHHY2011AU106007

PATIENT
  Age: 81 Year
  Sex: Female
  Weight: 58.7 kg

DRUGS (2)
  1. ACLASTA [Suspect]
     Active Substance: ZOLEDRONIC ACID
     Indication: OSTEOPOROSIS
     Dosage: 5 MG, UNK
     Route: 042
     Dates: start: 20100511
  2. ATENOLOL. [Concomitant]
     Active Substance: ATENOLOL
     Indication: PRODUCT USED FOR UNKNOWN INDICATION
     Dosage: 50 MG, MANE (IN THE MORNING)
     Route: 065

REACTIONS (8)
  - Vomiting [Fatal]
  - Constipation [Fatal]
  - Sepsis [Unknown]
  - Dehydration [Fatal]
  - Adenocarcinoma of colon [Fatal]
  - General physical health deterioration [Unknown]
  - Intestinal obstruction [None]
  - Enterovesical fistula [None]

NARRATIVE: CASE EVENT DATE: 20100923
